FAERS Safety Report 8033241-5 (Version None)
Quarter: 2012Q1

REPORT INFORMATION
  Report Type: 
  Country: None (occurrence: None)
  Receive Date: 20120110
  Receipt Date: 20120103
  Transmission Date: 20120608
  Serious: Yes (Hospitalization)
  Sender: FDA-Public Use
  Company Number: US-BAYER-2011-049319

PATIENT
  Age: 20 Year
  Sex: Female
  Weight: 129.25 kg

DRUGS (8)
  1. NAPROXEN [Concomitant]
     Indication: INFLAMMATION
     Dosage: UNK
     Dates: start: 20090201, end: 20091001
  2. EPHEDRA [Concomitant]
     Dosage: UNK UNK, OW
  3. PROZAC [Concomitant]
     Indication: MOOD SWINGS
     Dosage: UNK
     Dates: start: 20080626
  4. FAMOTIDINE [Concomitant]
  5. ACETAMINOPHEN AND TRAMADOL HCL [Concomitant]
  6. DROSPIRENONE AND ETHINYL ESTRADIOL [Suspect]
     Indication: PREMENSTRUAL SYNDROME
     Dosage: UNK
     Dates: start: 20090501, end: 20100202
  7. YASMIN [Suspect]
     Indication: PREMENSTRUAL SYNDROME
     Dosage: UNK
     Dates: start: 20081106, end: 20090409
  8. NAPROXEN [Concomitant]
     Indication: PAIN

REACTIONS (9)
  - ABDOMINAL PAIN LOWER [None]
  - EMOTIONAL DISTRESS [None]
  - ABDOMINAL DISCOMFORT [None]
  - GALLBLADDER DISORDER [None]
  - GENERAL PHYSICAL HEALTH DETERIORATION [None]
  - CHOLECYSTITIS CHRONIC [None]
  - ANXIETY [None]
  - INJURY [None]
  - PAIN [None]
